FAERS Safety Report 6522551-6 (Version None)
Quarter: 2009Q4

REPORT INFORMATION
  Report Type: 
  Country: None (occurrence: None)
  Receive Date: 20091230
  Receipt Date: 20091219
  Transmission Date: 20100525
  Serious: Yes (Life-Threatening)
  Sender: FDA-Public Use
  Company Number: JP-MERCK-0912USA03357

PATIENT
  Age: 69 Year
  Sex: Female

DRUGS (6)
  1. JANUVIA [Suspect]
     Indication: DIABETES MELLITUS
     Route: 048
     Dates: start: 20091216, end: 20091218
  2. EPADEL S [Concomitant]
     Route: 048
  3. NORVASC [Concomitant]
     Route: 048
  4. ACTONEL [Concomitant]
     Route: 048
  5. MYSLEE [Concomitant]
     Route: 048
  6. DEPAS [Concomitant]
     Route: 048

REACTIONS (3)
  - OEDEMA [None]
  - OEDEMA MOUTH [None]
  - PHARYNGEAL OEDEMA [None]
